FAERS Safety Report 22122564 (Version 1)
Quarter: 2023Q1

REPORT INFORMATION
  Report Type: Spontaneous
  Country: US (occurrence: US)
  Receive Date: 20230321
  Receipt Date: 20230321
  Transmission Date: 20230418
  Serious: No
  Sender: FDA-Public Use
  Company Number: US-ELI_LILLY_AND_COMPANY-US202303010060

PATIENT
  Sex: Female

DRUGS (2)
  1. MOUNJARO [Suspect]
     Active Substance: TIRZEPATIDE
     Indication: Type 2 diabetes mellitus
     Dosage: 2.5 MG, UNKNOWN
     Route: 058
  2. SEMGLEE [INSULIN GLARGINE] [Concomitant]
     Indication: Type 2 diabetes mellitus
     Dosage: 20 ML, DAILY
     Route: 065

REACTIONS (2)
  - Eructation [Recovered/Resolved]
  - Flatulence [Recovered/Resolved]
